FAERS Safety Report 24053266 (Version 1)
Quarter: 2024Q3

REPORT INFORMATION
  Report Type: Spontaneous
  Country: US (occurrence: US)
  Receive Date: 20240705
  Receipt Date: 20240705
  Transmission Date: 20241016
  Serious: Yes (Hospitalization)
  Sender: HIKMA
  Company Number: HIKM2405098

PATIENT

DRUGS (1)
  1. LORAZEPAM INTENSOL [Suspect]
     Active Substance: LORAZEPAM
     Indication: Restlessness
     Dosage: 0.5MG
     Route: 042

REACTIONS (2)
  - Atrial fibrillation [Unknown]
  - Incorrect route of product administration [Unknown]
